FAERS Safety Report 19213044 (Version 1)
Quarter: 2021Q2

REPORT INFORMATION
  Report Type: Spontaneous
  Country: US (occurrence: US)
  Receive Date: 20210504
  Receipt Date: 20210504
  Transmission Date: 20210717
  Serious: No
  Sender: FDA-Public Use
  Company Number: US-MYLANLABS-2021M1020145

PATIENT
  Sex: Female

DRUGS (3)
  1. DIVIGEL [Suspect]
     Active Substance: ESTRADIOL
     Indication: PRODUCT USED FOR UNKNOWN INDICATION
     Dosage: UNK
     Route: 061
  2. ESTRADIOL. [Suspect]
     Active Substance: ESTRADIOL
     Indication: PRODUCT USED FOR UNKNOWN INDICATION
     Dosage: UNK
     Route: 062
  3. DIVIGEL [Suspect]
     Active Substance: ESTRADIOL
     Dosage: UNK
     Route: 061

REACTIONS (2)
  - Hot flush [Unknown]
  - Product adhesion issue [Unknown]
